FAERS Safety Report 9487352 (Version 2)
Quarter: 2013Q3

REPORT INFORMATION
  Report Type: Spontaneous
  Country: BR (occurrence: BR)
  Receive Date: 20130829
  Receipt Date: 20130830
  Transmission Date: 20140515
  Serious: Yes (Death, Hospitalization)
  Sender: FDA-Public Use
  Company Number: BR-BAYER-2013-104001

PATIENT
  Age: 64 Year
  Sex: Female

DRUGS (1)
  1. ULTRAVIST [Suspect]
     Indication: COMPUTERISED TOMOGRAM THORAX
     Dosage: 75 ML, ONCE
     Route: 042
     Dates: start: 20130726, end: 20130726

REACTIONS (3)
  - Cardiac arrest [Fatal]
  - Feeling abnormal [None]
  - General physical health deterioration [None]
